FAERS Safety Report 5384381-0 (Version None)
Quarter: 2007Q3

REPORT INFORMATION
  Report Type: 
  Country: None (occurrence: None)
  Receive Date: 20070711
  Receipt Date: 20070415
  Transmission Date: 20080115
  Serious: No
  Sender: FDA-Public Use
  Company Number: US-AMGEN-KDL215121

PATIENT
  Sex: Female

DRUGS (5)
  1. KINERET [Suspect]
     Indication: RHEUMATOID ARTHRITIS
     Route: 058
     Dates: start: 20070123, end: 20070314
  2. PREDNISONE [Concomitant]
  3. ADVAIR DISKUS 100/50 [Concomitant]
  4. DOXYCYCLINE [Concomitant]
  5. MUCINEX [Concomitant]

REACTIONS (2)
  - RHEUMATOID ARTHRITIS [None]
  - THERAPEUTIC RESPONSE DELAYED [None]
